FAERS Safety Report 16307194 (Version 2)
Quarter: 2019Q3

REPORT INFORMATION
  Report Type: Report from Study
  Country: None (occurrence: US)
  Receive Date: 20190514
  Receipt Date: 20190814
  Transmission Date: 20191004
  Serious: Yes (Other)
  Sender: FDA-Public Use
  Company Number: US-ABBVIE-19K-163-2675921-00

PATIENT
  Age: 55 Year
  Sex: Male
  Weight: 101.7 kg

DRUGS (2)
  1. HUMIRA [Suspect]
     Active Substance: ADALIMUMAB
     Indication: COLITIS ULCERATIVE
     Route: 058
  2. HUMIRA [Suspect]
     Active Substance: ADALIMUMAB
     Dosage: CITRATE FREE
     Route: 058

REACTIONS (6)
  - Injection site pain [Recovered/Resolved]
  - Pruritus [Recovered/Resolved]
  - Colitis ulcerative [Recovered/Resolved]
  - Photosensitivity reaction [Unknown]
  - Systemic lupus erythematosus [Unknown]
  - Abdominal distension [Unknown]

NARRATIVE: CASE EVENT DATE: 201904
